FAERS Safety Report 12558944 (Version 9)
Quarter: 2024Q4

REPORT INFORMATION
  Report Type: Report from Study
  Country: US (occurrence: US)
  Receive Date: 20160715
  Receipt Date: 20241030
  Transmission Date: 20250115
  Serious: Yes (Hospitalization, Disabling, Other)
  Sender: AMGEN
  Company Number: US-AMGEN-USASL2016089922

PATIENT
  Age: 66 Year
  Sex: Male

DRUGS (10)
  1. ENBREL [Suspect]
     Active Substance: ETANERCEPT
     Indication: Rheumatoid arthritis
     Dosage: UNK
     Route: 065
     Dates: start: 2011, end: 201411
  2. ENBREL [Suspect]
     Active Substance: ETANERCEPT
     Indication: Psoriatic arthropathy
     Dosage: 50 MG, QWK
     Route: 065
  3. ENBREL [Suspect]
     Active Substance: ETANERCEPT
     Dosage: UNK
     Route: 065
     Dates: start: 2016
  4. OTEZLA [Suspect]
     Active Substance: APREMILAST
     Indication: Product used for unknown indication
     Dosage: UNK
     Route: 065
     Dates: start: 2016, end: 2016
  5. PREDNISONE [Concomitant]
     Active Substance: PREDNISONE
     Indication: Product used for unknown indication
     Dosage: 5 MG, BID
     Route: 065
  6. AMLODIPINE [Concomitant]
     Active Substance: AMLODIPINE BESYLATE
     Indication: Blood pressure abnormal
     Dosage: 5 MG, QD
  7. GABAPENTIN [Concomitant]
     Active Substance: GABAPENTIN
     Indication: Neuropathy peripheral
     Dosage: 800 MG, TID AS NEEDED
  8. METOPROLOL [Concomitant]
     Active Substance: METOPROLOL
     Dosage: 50 MG, BID
  9. TAMSULOSIN [Concomitant]
     Active Substance: TAMSULOSIN
     Indication: Urinary tract disorder
     Dosage: 0.4 MG, BID
  10. FUROSEMIDE [Concomitant]
     Active Substance: FUROSEMIDE
     Indication: Diuretic therapy
     Dosage: 40 MG, QD (1.5 TABLETS)
     Route: 065

REACTIONS (11)
  - Post procedural sepsis [Unknown]
  - Pyoderma gangrenosum [Unknown]
  - Peripheral vascular disorder [Unknown]
  - Cataract [Unknown]
  - Gait disturbance [Not Recovered/Not Resolved]
  - Cystoscopy [Unknown]
  - Blister [Unknown]
  - Incision site haemorrhage [Unknown]
  - Erythema [Unknown]
  - Impaired healing [Unknown]
  - Endodontic procedure [Unknown]

NARRATIVE: CASE EVENT DATE: 20120101
